FAERS Safety Report 9795997 (Version 1)
Quarter: 2014Q1

REPORT INFORMATION
  Report Type: Spontaneous
  Country: US (occurrence: US)
  Receive Date: 20140103
  Receipt Date: 20140103
  Transmission Date: 20141002
  Serious: No
  Sender: FDA-Public Use
  Company Number: US-GILEAD-2010-0032287

PATIENT
  Age: 23 Year
  Sex: Female

DRUGS (2)
  1. CAYSTON [Suspect]
     Indication: CYSTIC FIBROSIS
     Route: 055
  2. ALBUTEROL [Concomitant]

REACTIONS (3)
  - Hypoaesthesia oral [Unknown]
  - Pharyngeal hypoaesthesia [Unknown]
  - Malaise [Unknown]
